FAERS Safety Report 19704241 (Version 1)
Quarter: 2021Q3

REPORT INFORMATION
  Report Type: Spontaneous
  Country: US (occurrence: US)
  Receive Date: 20210813
  Receipt Date: 20210813
  Transmission Date: 20211014
  Serious: Yes (Other)
  Sender: FDA-Public Use
  Company Number: None

PATIENT
  Age: 23 Year
  Sex: Male
  Weight: 83.01 kg

DRUGS (1)
  1. BUPROPION  XL 150 MG [Suspect]
     Active Substance: BUPROPION
     Indication: ANXIETY
     Route: 048
     Dates: start: 20210614, end: 20210715

REACTIONS (6)
  - Anxiety [None]
  - Tremor [None]
  - Palpitations [None]
  - Tachycardia [None]
  - Agitation [None]
  - Therapeutic product effect decreased [None]

NARRATIVE: CASE EVENT DATE: 20210614
